FAERS Safety Report 25182369 (Version 1)
Quarter: 2025Q2

REPORT INFORMATION
  Report Type: Spontaneous
  Country: US (occurrence: US)
  Receive Date: 20250410
  Receipt Date: 20250410
  Transmission Date: 20250716
  Serious: No
  Sender: KINIKSA PHARMACEUTICALS
  Company Number: US-Kiniksa Pharmaceuticals Ltd.-2024KPU001739

PATIENT
  Age: 31 Year
  Sex: Male
  Weight: 99.88 kg

DRUGS (2)
  1. ARCALYST [Suspect]
     Active Substance: RILONACEPT
     Indication: Pericarditis
     Dosage: 2 ML ONCE WEEKLY
     Route: 058
  2. ATORVASTATIN [Concomitant]
     Active Substance: ATORVASTATIN

REACTIONS (9)
  - Inappropriate schedule of product administration [Recovered/Resolved]
  - Pericarditis [Recovered/Resolved]
  - Anxiety [Recovered/Resolved]
  - Systolic dysfunction [Recovered/Resolved]
  - Chest pain [Recovered/Resolved]
  - Exposure to SARS-CoV-2 [Recovered/Resolved]
  - Dyspnoea [Recovered/Resolved]
  - Weight increased [Recovered/Resolved]
  - Inappropriate schedule of product discontinuation [Unknown]

NARRATIVE: CASE EVENT DATE: 20240101
